FAERS Safety Report 11836312 (Version 1)
Quarter: 2015Q4

REPORT INFORMATION
  Report Type: Spontaneous
  Country: US (occurrence: None)
  Receive Date: 20151214
  Receipt Date: 20151214
  Transmission Date: 20160305
  Serious: Yes (Other)
  Sender: FDA-Public Use
  Company Number: None

PATIENT
  Age: 84 Year
  Sex: Female

DRUGS (1)
  1. IBRANCE [Suspect]
     Active Substance: PALBOCICLIB
     Indication: BREAST CANCER
     Route: 048
     Dates: start: 20151125, end: 20151212

REACTIONS (5)
  - Speech disorder [None]
  - Neuropathy peripheral [None]
  - Gait disturbance [None]
  - Condition aggravated [None]
  - Mental impairment [None]

NARRATIVE: CASE EVENT DATE: 20151211
